FAERS Safety Report 10079972 (Version 5)
Quarter: 2014Q3

REPORT INFORMATION
  Report Type: Report from Study
  Country: JP (occurrence: JP)
  Receive Date: 20140415
  Receipt Date: 20140919
  Transmission Date: 20150326
  Serious: Yes (Death, Life-Threatening, Other)
  Sender: FDA-Public Use
  Company Number: JP-ABBVIE-14P-087-1225375-00

PATIENT
  Age: 78 Year
  Sex: Female
  Weight: 45 kg

DRUGS (11)
  1. CEFOPERAZONE SODIUM W/SULBACTAM [Suspect]
     Active Substance: CEFOPERAZONE SODIUM\SULBACTAM
     Indication: CHOLECYSTITIS
  2. ECABET SODIUM [Concomitant]
     Active Substance: ECABET SODIUM
     Indication: PROPHYLAXIS
     Route: 048
     Dates: end: 20140213
  3. SULFAMETHOXAZOLE-TRIMETHOPRIM (SMZ) [Concomitant]
     Active Substance: SULFAMETHOXAZOLE\TRIMETHOPRIM
     Indication: PROPHYLAXIS
     Route: 048
     Dates: end: 20140407
  4. ESOMEPRAZOLE MAGNESIUM. [Concomitant]
     Active Substance: ESOMEPRAZOLE MAGNESIUM
     Indication: PROPHYLAXIS
     Route: 048
     Dates: end: 20140407
  5. HUMIRA [Suspect]
     Active Substance: ADALIMUMAB
     Dates: start: 20140310, end: 20140310
  6. HUMIRA [Suspect]
     Active Substance: ADALIMUMAB
     Indication: BEHCET^S SYNDROME
     Route: 058
     Dates: start: 20140210, end: 20140210
  7. STEROID PULSE THERAPY [Suspect]
     Active Substance: UNSPECIFIED INGREDIENT
     Indication: BEHCET^S SYNDROME
     Dates: start: 20140321
  8. PARENTERAL [Concomitant]
     Indication: ENTERAL NUTRITION
     Route: 048
     Dates: end: 20140320
  9. ALENDRONATE SODIUM HYDRATE [Concomitant]
     Active Substance: ALENDRONATE SODIUM
     Indication: PROPHYLAXIS
     Route: 048
     Dates: end: 20140405
  10. HUMIRA [Suspect]
     Active Substance: ADALIMUMAB
     Dates: start: 20140224, end: 20140224
  11. CLOSTRIDIUM BUTYRICUM [Concomitant]
     Active Substance: CLOSTRIDIUM BUTYRICUM SPORES STRAIN M-55
     Indication: PROPHYLAXIS
     Route: 048
     Dates: end: 20140407

REACTIONS (8)
  - Sepsis [Fatal]
  - Drug ineffective [Not Recovered/Not Resolved]
  - Hepatic enzyme increased [Not Recovered/Not Resolved]
  - Cholecystitis [Fatal]
  - Pyrexia [Unknown]
  - Behcet^s syndrome [Not Recovered/Not Resolved]
  - Drug effect incomplete [Not Recovered/Not Resolved]
  - Bacterial infection [Not Recovered/Not Resolved]

NARRATIVE: CASE EVENT DATE: 2014
